FAERS Safety Report 7328739-9 (Version None)
Quarter: 2011Q1

REPORT INFORMATION
  Report Type: 
  Country: None (occurrence: None)
  Receive Date: 20110303
  Receipt Date: 20110218
  Transmission Date: 20110831
  Serious: Yes (Hospitalization)
  Sender: FDA-Public Use
  Company Number: PHHY2011CA08884

PATIENT
  Sex: Female

DRUGS (3)
  1. ALISKIREN [Suspect]
     Indication: HYPERTENSION
     Dosage: 150 MG, QD
     Route: 048
     Dates: start: 20100401, end: 20101112
  2. ATACAND [Concomitant]
     Dosage: UNK
     Dates: start: 20050101
  3. MONOCOR [Concomitant]
     Dosage: 5 MG, UNK
     Dates: start: 19900101

REACTIONS (6)
  - PULMONARY EMBOLISM [None]
  - HYPOTENSION [None]
  - DIZZINESS [None]
  - DYSPNOEA [None]
  - SYNCOPE [None]
  - ASTHENIA [None]
